FAERS Safety Report 21803899 (Version 1)
Quarter: 2023Q1

REPORT INFORMATION
  Report Type: Spontaneous
  Country: JP (occurrence: JP)
  Receive Date: 20230102
  Receipt Date: 20230102
  Transmission Date: 20230418
  Serious: Yes (Hospitalization)
  Sender: FDA-Public Use
  Company Number: JP-KYOWAKIRIN-2022AKK020023

PATIENT
  Age: 87 Year
  Sex: Female

DRUGS (1)
  1. DARBEPOETIN ALFA [Suspect]
     Active Substance: DARBEPOETIN ALFA
     Indication: Nephrogenic anaemia
     Dosage: 120 MICROGRAM, UNK
     Route: 065
     Dates: end: 202207

REACTIONS (1)
  - Urinary tract infection [Unknown]
